FAERS Safety Report 5164908-4 (Version None)
Quarter: 2006Q4

REPORT INFORMATION
  Report Type: 
  Country: None (occurrence: None)
  Receive Date: 20061124
  Receipt Date: 20061116
  Transmission Date: 20070319
  Serious: Yes (Hospitalization)
  Sender: FDA-Public Use
  Company Number: 2006-05853

PATIENT
  Age: 43 Year
  Sex: Female

DRUGS (3)
  1. METRONIDAZOLE [Suspect]
     Indication: GINGIVITIS
     Dosage: ORAL
     Route: 048
  2. AMOXICILLIN [Concomitant]
  3. CEFUROXIME [Concomitant]

REACTIONS (1)
  - STEVENS-JOHNSON SYNDROME [None]
